FAERS Safety Report 12313067 (Version 1)
Quarter: 2016Q2

REPORT INFORMATION
  Report Type: Spontaneous
  Country: US (occurrence: None)
  Receive Date: 20160427
  Receipt Date: 20160427
  Transmission Date: 20160815
  Serious: Yes (Disabling)
  Sender: FDA-Public Use
  Company Number: None

PATIENT
  Age: 70 Year
  Sex: Female
  Weight: 122.47 kg

DRUGS (12)
  1. LINSINOPRIL [Concomitant]
  2. SIMVASTATIN. [Concomitant]
     Active Substance: SIMVASTATIN
  3. TYLENOL PM [Concomitant]
     Active Substance: ACETAMINOPHEN\DIPHENHYDRAMINE
  4. MULTIVITAMIN [Concomitant]
     Active Substance: VITAMINS
  5. PYRIDOSTIGMINE [Concomitant]
     Active Substance: PYRIDOSTIGMINE
  6. METFORMIN [Concomitant]
     Active Substance: METFORMIN HYDROCHLORIDE
  7. AZATHIOPRINE. [Concomitant]
     Active Substance: AZATHIOPRINE
  8. TIZANIDINE. [Concomitant]
     Active Substance: TIZANIDINE
  9. CALCIUM WITH VITAMIN D [Concomitant]
     Active Substance: CALCIUM\VITAMIN D
  10. LEXISCAN [Suspect]
     Active Substance: REGADENOSON
     Indication: CARDIAC STRESS TEST
     Dosage: ONE TIME BOLUS INTO A VEIN
     Route: 042
     Dates: start: 20160422, end: 20160422
  11. PREDNISONE. [Concomitant]
     Active Substance: PREDNISONE
  12. OSTEO-BIFLEX [Concomitant]

REACTIONS (6)
  - Speech disorder [None]
  - Blood pressure increased [None]
  - Asthenia [None]
  - Myasthenia gravis [None]
  - Lethargy [None]
  - Dysphagia [None]

NARRATIVE: CASE EVENT DATE: 20160422
